FAERS Safety Report 20430821 (Version 4)
Quarter: 2022Q1

REPORT INFORMATION
  Report Type: Report from Study
  Country: BE (occurrence: BE)
  Receive Date: 20220204
  Receipt Date: 20220328
  Transmission Date: 20220423
  Serious: Yes (Other)
  Sender: FDA-Public Use
  Company Number: BE-ROCHE-2999480

PATIENT
  Age: 56 Year
  Sex: Male

DRUGS (7)
  1. DIPROPHOS [Suspect]
     Active Substance: BETAMETHASONE DIPROPIONATE\BETAMETHASONE SODIUM PHOSPHATE
     Dosage: UNK
     Route: 065
  2. POLYETHYLENE GLYCOL 4000 [Suspect]
     Active Substance: POLYETHYLENE GLYCOL 4000
     Dosage: 100 MILLIGRAM PER MILLILITRE
     Route: 048
  3. POLYSORBATE 80 [Suspect]
     Active Substance: POLYSORBATE 80
     Dosage: 1 MILLIGRAM PER MILLILITRE
  4. MOVICOL [Suspect]
     Active Substance: POLYETHYLENE GLYCOL 3350\POTASSIUM CHLORIDE\SODIUM BICARBONATE\SODIUM CHLORIDE
     Dosage: 100 MILLIGRAM PER MILLILITRE
     Route: 048
  5. DEPO-MEDROL [Suspect]
     Active Substance: METHYLPREDNISOLONE ACETATE
     Dosage: 40 MILLIGRAM PER MILLILITRE
     Route: 048
  6. DEPO-MEDROL [Suspect]
     Active Substance: METHYLPREDNISOLONE ACETATE
     Dosage: UP TO 2.9 MG/ML, A 1/10 DILUTION
     Route: 048
  7. PEG 3350 [Suspect]
     Active Substance: POLYETHYLENE GLYCOL 3350
     Dosage: 29 MILLIGRAM PER MILLILITRE
     Route: 048

REACTIONS (1)
  - Anaphylactic reaction [Unknown]
